FAERS Safety Report 9778117 (Version 2)
Quarter: 2014Q1

REPORT INFORMATION
  Report Type: Spontaneous
  Country: JP (occurrence: JP)
  Receive Date: 20131223
  Receipt Date: 20140117
  Transmission Date: 20141002
  Serious: Yes (Hospitalization)
  Sender: FDA-Public Use
  Company Number: JP-AMGEN-JPNSP2013089541

PATIENT
  Age: 83 Year
  Sex: Male

DRUGS (7)
  1. RANMARK [Suspect]
     Indication: PROSTATE CANCER
     Route: 058
     Dates: start: 20131021, end: 20131021
  2. CASODEX [Concomitant]
     Indication: PROSTATE CANCER
     Route: 048
     Dates: start: 20130924
  3. GONAX [Concomitant]
     Indication: PROSTATE CANCER
     Route: 058
     Dates: start: 20130924
  4. MIYA BM [Concomitant]
     Indication: DIARRHOEA
     Route: 048
     Dates: start: 20131003
  5. ARTIST [Concomitant]
     Indication: HYPERTENSION
     Route: 048
  6. OLMETEC [Concomitant]
     Indication: HYPERTENSION
     Route: 048
  7. BAYASPIRIN [Concomitant]
     Indication: PRODUCT USED FOR UNKNOWN INDICATION
     Route: 048

REACTIONS (4)
  - Pyrexia [Recovering/Resolving]
  - Disseminated intravascular coagulation [Recovering/Resolving]
  - Renal impairment [Recovering/Resolving]
  - Hypocalcaemia [Recovered/Resolved]
